FAERS Safety Report 18821760 (Version 3)
Quarter: 2021Q4

REPORT INFORMATION
  Report Type: Spontaneous
  Country: US (occurrence: US)
  Receive Date: 20210202
  Receipt Date: 20211216
  Transmission Date: 20220303
  Serious: No
  Sender: FDA-Public Use
  Company Number: US-PFIZER INC-2021099139

PATIENT
  Age: 66 Year
  Sex: Female
  Weight: 76.2 kg

DRUGS (6)
  1. LYRICA [Suspect]
     Active Substance: PREGABALIN
     Indication: Rheumatoid arthritis
     Dosage: 150 MG, 2X/DAY
  2. CARVIL [Concomitant]
     Indication: Blood pressure abnormal
     Dosage: UNK
  3. CARVIL [Concomitant]
     Indication: Cardiac disorder
  4. CYCLOBENZAPRINE [Concomitant]
     Active Substance: CYCLOBENZAPRINE
     Dosage: UNK
  5. LEVOTHYROXINE [Concomitant]
     Active Substance: LEVOTHYROXINE
     Dosage: UNK
  6. XELJANZ [Concomitant]
     Active Substance: TOFACITINIB CITRATE
     Dosage: UNK

REACTIONS (5)
  - Off label use [Unknown]
  - Pain in extremity [Unknown]
  - Impaired healing [Unknown]
  - Myalgia [Unknown]
  - Withdrawal syndrome [Unknown]
